FAERS Safety Report 8398915-5 (Version None)
Quarter: 2012Q1

REPORT INFORMATION
  Report Type: 
  Country: None (occurrence: None)
  Receive Date: 20120323
  Receipt Date: 20111115
  Transmission Date: 20120608
  Serious: Yes (Other)
  Sender: FDA-Public Use
  Company Number: 163-21880-11112507

PATIENT
  Age: 85 Year
  Sex: Female
  Weight: 50.8 kg

DRUGS (2)
  1. ANTIBIOTICS (ANTIBIOTICS) (UNKNOWN) [Concomitant]
  2. REVLIMID [Suspect]
     Indication: MULTIPLE MYELOMA
     Dosage: 5 MG, DAILY X 28 DAYS, PO
     Route: 048
     Dates: start: 20110124

REACTIONS (3)
  - DIARRHOEA [None]
  - DRUG INEFFECTIVE [None]
  - ALOPECIA [None]
